FAERS Safety Report 5278432-1 (Version None)
Quarter: 2007Q1

REPORT INFORMATION
  Report Type: 
  Country: None (occurrence: None)
  Receive Date: 20070322
  Receipt Date: 20070313
  Transmission Date: 20070707
  Serious: Yes (Other)
  Sender: FDA-Public Use
  Company Number: 2007SP004353

PATIENT
  Age: 51 Year
  Sex: Female
  Weight: 107 kg

DRUGS (8)
  1. PEG-INTRON [Suspect]
     Indication: HEPATITIS C
     Dosage: 150 MCG; ; SC
     Route: 058
     Dates: start: 20070112
  2. RIBAVIRIN [Suspect]
     Indication: HEPATITIS C
     Dosage: 1400 MG; QD; PO
     Route: 048
     Dates: start: 20070112
  3. LEVOTHYROXINE SODIUM [Concomitant]
  4. ADIPEX [Concomitant]
  5. PROZAC [Concomitant]
  6. DIAZEPAM [Concomitant]
  7. XANAX [Concomitant]
  8. TOPAMAX [Concomitant]

REACTIONS (7)
  - DEHYDRATION [None]
  - DEPRESSION [None]
  - HYPOTRICHOSIS [None]
  - NAUSEA [None]
  - PYREXIA [None]
  - SYNCOPE [None]
  - VOMITING [None]
